FAERS Safety Report 5224306-1 (Version None)
Quarter: 2007Q1

REPORT INFORMATION
  Report Type: 
  Country: None (occurrence: None)
  Receive Date: 20070130
  Receipt Date: 20070123
  Transmission Date: 20070707
  Serious: Yes (Death)
  Sender: FDA-Public Use
  Company Number: CA-ROXANE LABORATORIES, INC-2007-BP-01318RO

PATIENT
  Age: 57 Year
  Sex: Male

DRUGS (4)
  1. CYCLOPHOSPHAMIDE [Suspect]
     Indication: CHEMOTHERAPY
  2. LAMIVUDINE [Suspect]
     Indication: ANTIVIRAL PROPHYLAXIS
  3. ADRIAMYCIN PFS [Suspect]
     Indication: CHEMOTHERAPY
  4. RITUXIMAB [Suspect]
     Indication: CHEMOTHERAPY

REACTIONS (14)
  - COAGULOPATHY [None]
  - COMA [None]
  - CONFUSIONAL STATE [None]
  - DEATH [None]
  - ENCEPHALOPATHY [None]
  - HEPATIC NECROSIS [None]
  - HEPATITIS B [None]
  - INCOHERENT [None]
  - JAUNDICE [None]
  - LEUKOCYTOSIS [None]
  - LYMPHADENOPATHY [None]
  - PRURITUS [None]
  - RESPIRATORY FAILURE [None]
  - THROMBOCYTOPENIA [None]
